FAERS Safety Report 4332602-5 (Version None)
Quarter: 2004Q1

REPORT INFORMATION
  Report Type: 
  Country: None (occurrence: None)
  Receive Date: 20040330
  Receipt Date: 20040318
  Transmission Date: 20041129
  Serious: Yes (Death, Hospitalization)
  Sender: FDA-Public Use
  Company Number: FR-JNJFOC-20040303948

PATIENT
  Age: 37 Year
  Sex: Female

DRUGS (12)
  1. HALDOL [Suspect]
     Indication: ADVERSE EVENT
     Dosage: ORAL
     Route: 048
     Dates: start: 20000615, end: 20031229
  2. NOZINAN (LEVOMEPROMAZINE) [Suspect]
     Indication: DRUG USE FOR UNKNOWN INDICATION
     Dosage: ORAL
     Route: 048
     Dates: start: 20031216, end: 20031229
  3. VANCOMYCIN [Suspect]
     Indication: LUNG DISORDER
     Dosage: INTRAVENOUS
     Route: 042
     Dates: start: 20031217, end: 20031229
  4. RIFAMPICIN [Suspect]
     Indication: LUNG DISORDER
     Dosage: 1200 MG, IN 1 DAY, INTRAVENOUS
     Route: 042
     Dates: start: 20031217, end: 20031229
  5. SKENAN LP (MORPHINE SULFATE) [Concomitant]
  6. MOPRAL 20 (OMEPRAZOLE) [Concomitant]
  7. AVLOCARDYL 40 (PROPRANOLOL) [Concomitant]
  8. FOLIC ACID [Concomitant]
  9. PAROXETINE HCL [Concomitant]
  10. TRANXELENE 20 (CLORAZEPATE DIPOTASSIUM) [Concomitant]
  11. LEXOMIL (BROMAZEPAM) [Concomitant]
  12. NEO-MERCAZOLE TAB [Concomitant]

REACTIONS (9)
  - BLOOD THYROID STIMULATING HORMONE DECREASED [None]
  - C-REACTIVE PROTEIN INCREASED [None]
  - DRUG INTERACTION [None]
  - JOINT EFFUSION [None]
  - PNEUMONIA STREPTOCOCCAL [None]
  - SUDDEN DEATH [None]
  - THYROXINE INCREASED [None]
  - TRI-IODOTHYRONINE [None]
  - WHITE BLOOD CELL COUNT DECREASED [None]
